FAERS Safety Report 4852943-2 (Version None)
Quarter: 2005Q4

REPORT INFORMATION
  Report Type: 
  Country: None (occurrence: None)
  Receive Date: 20051212
  Receipt Date: 20051201
  Transmission Date: 20060501
  Serious: Yes (Death)
  Sender: FDA-Public Use
  Company Number: 2005JP002270

PATIENT
  Age: 81 Year
  Sex: Female
  Weight: 37 kg

DRUGS (9)
  1. PROGRAF [Suspect]
     Indication: MYASTHENIA GRAVIS
     Dosage: SEE IMAGE
     Route: 048
     Dates: start: 20051109, end: 20041114
  2. PROGRAF [Suspect]
     Indication: MYASTHENIA GRAVIS
     Dosage: SEE IMAGE
     Route: 048
     Dates: start: 20050630, end: 20051108
  3. PREDNISOLONE [Suspect]
     Dosage: 30 MG, ORAL
     Route: 048
     Dates: start: 20050330, end: 20050101
  4. AMISALIN (PROCAINAMIDE HYDROCHLORIDE) [Concomitant]
  5. SLOW-K [Concomitant]
  6. TAGAMET [Concomitant]
  7. PRAVASTATIN [Concomitant]
  8. BONALON (ALENDRONIC ACID) [Concomitant]
  9. GLIMICRON (GLICLAZIDE) [Concomitant]

REACTIONS (8)
  - CRYPTOCOCCOSIS [None]
  - CYTOMEGALOVIRUS INFECTION [None]
  - DRUG LEVEL INCREASED [None]
  - INFECTION IN AN IMMUNOCOMPROMISED HOST [None]
  - INTESTINAL OBSTRUCTION [None]
  - MENINGITIS CRYPTOCOCCAL [None]
  - PNEUMOCYSTIS JIROVECI PNEUMONIA [None]
  - RESPIRATORY FAILURE [None]
